FAERS Safety Report 4408425-5 (Version None)
Quarter: 2004Q3

REPORT INFORMATION
  Report Type: 
  Country: None (occurrence: None)
  Receive Date: 20040726
  Receipt Date: 20040726
  Transmission Date: 20050211
  Serious: Yes (Other)
  Sender: FDA-Public Use
  Company Number: None

PATIENT
  Sex: Female
  Weight: 104.3273 kg

DRUGS (3)
  1. NALTREXONE [Suspect]
     Indication: VIRILISM
     Dosage: 50 MGM TAB
     Dates: start: 20040713
  2. EVISTA [Concomitant]
  3. GLUCOPHAGE [Concomitant]

REACTIONS (4)
  - ERYTHEMA [None]
  - FEELING HOT [None]
  - HEADACHE [None]
  - NAUSEA [None]
